FAERS Safety Report 19164452 (Version 3)
Quarter: 2021Q2

REPORT INFORMATION
  Report Type: Spontaneous
  Country: DE (occurrence: DE)
  Receive Date: 20210421
  Receipt Date: 20210517
  Transmission Date: 20210717
  Serious: Yes (Hospitalization, Other)
  Sender: FDA-Public Use
  Company Number: DE-ASTELLAS-2021US014062

PATIENT
  Age: 86 Year
  Sex: Male

DRUGS (2)
  1. ASPIRIN. [Concomitant]
     Active Substance: ASPIRIN
     Indication: PRODUCT USED FOR UNKNOWN INDICATION
     Route: 048
     Dates: start: 2019
  2. XTANDI [Suspect]
     Active Substance: ENZALUTAMIDE
     Indication: PROSTATE CANCER
     Dosage: 4 DF, ONCE DAILY (TABLETS)
     Route: 048
     Dates: start: 20200508, end: 20210414

REACTIONS (8)
  - Cerebrovascular accident [Unknown]
  - Disorientation [Unknown]
  - Loss of consciousness [Unknown]
  - Vascular dementia [Unknown]
  - Aphasia [Unknown]
  - Fall [Unknown]
  - Confusional state [Unknown]
  - Personality change [Unknown]

NARRATIVE: CASE EVENT DATE: 202007
